FAERS Safety Report 17274045 (Version 1)
Quarter: 2020Q1

REPORT INFORMATION
  Report Type: Spontaneous
  Country: US (occurrence: US)
  Receive Date: 20191226
  Receipt Date: 20191226
  Transmission Date: 20200409
  Serious: Yes (Death)
  Sender: FDA-Public Use
  Company Number: None

PATIENT
  Age: 89 Year
  Sex: Male

DRUGS (1)
  1. ERLEADA [Suspect]
     Active Substance: APALUTAMIDE
     Indication: PROSTATE CANCER
     Dosage: ?          OTHER DOSE:4 TABS;?
     Route: 048
     Dates: start: 20191102, end: 20191223

REACTIONS (1)
  - Death [None]

NARRATIVE: CASE EVENT DATE: 20191223
